FAERS Safety Report 21732675 (Version 1)
Quarter: 2022Q4

REPORT INFORMATION
  Report Type: Report from Study
  Country: EG (occurrence: EG)
  Receive Date: 20221215
  Receipt Date: 20221215
  Transmission Date: 20230113
  Serious: Yes (Death, Hospitalization, Other)
  Sender: FDA-Public Use
  Company Number: EG-SUN PHARMACEUTICAL INDUSTRIES LTD-2022R1-367905

PATIENT
  Age: 29 Year
  Sex: Female

DRUGS (3)
  1. CISPLATIN [Suspect]
     Active Substance: CISPLATIN
     Indication: Non-Hodgkin^s lymphoma
     Dosage: UNK (3 COURSES)
     Route: 065
  2. DEXAMETHASONE [Suspect]
     Active Substance: DEXAMETHASONE
     Indication: Non-Hodgkin^s lymphoma
     Dosage: UNK (3 COURSES)
     Route: 065
  3. GEMCITABINE [Suspect]
     Active Substance: GEMCITABINE
     Indication: Non-Hodgkin^s lymphoma
     Dosage: UNK (3 COURSES)
     Route: 065

REACTIONS (6)
  - Disease progression [Fatal]
  - Multiple organ dysfunction syndrome [Fatal]
  - Anaemia [Unknown]
  - Acute kidney injury [Unknown]
  - Seizure [Unknown]
  - Altered state of consciousness [Unknown]
